FAERS Safety Report 12250254 (Version 1)
Quarter: 2016Q2

REPORT INFORMATION
  Report Type: Report from Study
  Country: CA (occurrence: CA)
  Receive Date: 20160408
  Receipt Date: 20160408
  Transmission Date: 20160815
  Serious: Yes (Death, Other)
  Sender: FDA-Public Use
  Company Number: CA-ASTRAZENECA-2015SF05471

PATIENT
  Age: 61 Year
  Sex: Male

DRUGS (7)
  1. XGEVA [Concomitant]
     Active Substance: DENOSUMAB
  2. ALFUZOSIN [Concomitant]
     Active Substance: ALFUZOSIN
  3. ZOLADEX LA [Suspect]
     Active Substance: GOSERELIN ACETATE
     Indication: PROSTATE CANCER
     Route: 058
     Dates: start: 20150205
  4. DEXAMETHASONE. [Concomitant]
     Active Substance: DEXAMETHASONE
  5. STATEX [Concomitant]
     Active Substance: MORPHINE SULFATE
  6. PREDNISONE. [Concomitant]
     Active Substance: PREDNISONE
  7. BICALUTAMIDE. [Concomitant]
     Active Substance: BICALUTAMIDE

REACTIONS (6)
  - Bone pain [Not Recovered/Not Resolved]
  - Death [Fatal]
  - Arthralgia [Not Recovered/Not Resolved]
  - Injection site haemorrhage [Not Recovered/Not Resolved]
  - Pain [Not Recovered/Not Resolved]
  - Metastases to bone [Not Recovered/Not Resolved]
